FAERS Safety Report 7865804-1 (Version None)
Quarter: 2011Q4

REPORT INFORMATION
  Report Type: 
  Country: None (occurrence: None)
  Receive Date: 20111028
  Receipt Date: 20110228
  Transmission Date: 20120403
  Serious: No
  Sender: FDA-Public Use
  Company Number: US-GLAXOSMITHKLINE-A0915864A

PATIENT
  Age: 57 Year
  Sex: Female

DRUGS (3)
  1. ADVAIR DISKUS 100/50 [Suspect]
     Indication: ASTHMA
     Dosage: 1PUFF TWICE PER DAY
     Route: 055
     Dates: start: 20070101
  2. ZITHROMAX [Concomitant]
  3. PREDNISONE [Concomitant]

REACTIONS (3)
  - OROPHARYNGEAL DISCOMFORT [None]
  - BURNING SENSATION [None]
  - PRODUCTIVE COUGH [None]
